FAERS Safety Report 8987635 (Version 1)
Quarter: 2012Q4

REPORT INFORMATION
  Report Type: 
  Country: US (occurrence: US)
  Receive Date: 20121227
  Receipt Date: 20121227
  Transmission Date: 20130627
  Serious: No
  Sender: FDA-Public Use
  Company Number: US-ASTRAZENECA-2012SE90960

PATIENT
  Age: 50 Year
  Sex: Male

DRUGS (1)
  1. SYMBICORT PMDI [Suspect]
     Indication: BRONCHITIS
     Dosage: 160/4.5 mg, 2 puffs Two times a day.
     Route: 055
     Dates: start: 20121202, end: 20121203

REACTIONS (4)
  - Diarrhoea [Recovered/Resolved]
  - Dyspepsia [Recovered/Resolved]
  - Nausea [Recovered/Resolved]
  - Off label use [Unknown]
